FAERS Safety Report 11412015 (Version 1)
Quarter: 2015Q3

REPORT INFORMATION
  Report Type: Spontaneous
  Country: US (occurrence: US)
  Receive Date: 20150821
  Receipt Date: 20150821
  Transmission Date: 20151125
  Serious: No
  Sender: FDA-Public Use
  Company Number: US-ELI_LILLY_AND_COMPANY-US201109004458

PATIENT
  Age: 66 Year
  Sex: Male

DRUGS (2)
  1. HUMULIN 70/30 [Suspect]
     Active Substance: INSULIN HUMAN
     Dosage: 16 U, EACH EVENING
  2. HUMULIN 70/30 [Suspect]
     Active Substance: INSULIN HUMAN
     Dosage: 26 U, EACH MORNING

REACTIONS (7)
  - Discomfort [Unknown]
  - Chest discomfort [Unknown]
  - Visual acuity reduced [Unknown]
  - Heart rate increased [Unknown]
  - Malaise [Unknown]
  - Headache [Unknown]
  - Aura [Unknown]

NARRATIVE: CASE EVENT DATE: 20110910
